FAERS Safety Report 8386274 (Version 4)
Quarter: 2016Q1

REPORT INFORMATION
  Report Type: Spontaneous
  Country: US (occurrence: US)
  Receive Date: 20120202
  Receipt Date: 20160120
  Transmission Date: 20160526
  Serious: Yes (Congenital Anomaly, Other)
  Sender: FDA-Public Use
  Company Number: US-GLAXOSMITHKLINE-A0964003A

PATIENT
  Age: 0 Day
  Sex: Male
  Weight: 3 kg

DRUGS (4)
  1. PAXIL CR [Suspect]
     Active Substance: PAROXETINE HYDROCHLORIDE
     Indication: DEPRESSION
     Dosage: 12.5 MG, UNK
     Route: 064
  2. PAROXETINE HYDROCHLORIDE. [Suspect]
     Active Substance: PAROXETINE HYDROCHLORIDE
     Indication: DEPRESSION
     Dosage: UNK
     Route: 064
  3. PAXIL [Suspect]
     Active Substance: PAROXETINE HYDROCHLORIDE
     Indication: DEPRESSION
     Dosage: 40 MG, UNK
  4. PAXIL [Suspect]
     Active Substance: PAROXETINE HYDROCHLORIDE
     Dosage: 20 MG, UNK

REACTIONS (8)
  - Speech disorder [Unknown]
  - Developmental delay [Unknown]
  - Hereditary pancreatitis [Unknown]
  - Talipes [Unknown]
  - Deafness [Unknown]
  - Heart rate abnormal [Unknown]
  - Foetal exposure during pregnancy [Unknown]
  - Autism [Unknown]

NARRATIVE: CASE EVENT DATE: 20050622
